FAERS Safety Report 20821197 (Version 1)
Quarter: 2022Q2

REPORT INFORMATION
  Report Type: Spontaneous
  Country: US (occurrence: US)
  Receive Date: 20220512
  Receipt Date: 20220512
  Transmission Date: 20220721
  Serious: Yes (Other)
  Sender: FDA-Public Use
  Company Number: US-SAMSUNG BIOEPIS-SB-2022-11253

PATIENT
  Age: 54 Year
  Sex: Male

DRUGS (7)
  1. ADALIMUMAB [Suspect]
     Active Substance: ADALIMUMAB
     Indication: Iridocyclitis
     Route: 065
  2. ADALIMUMAB [Suspect]
     Active Substance: ADALIMUMAB
     Indication: Central serous chorioretinopathy
  3. ADALIMUMAB [Suspect]
     Active Substance: ADALIMUMAB
     Indication: Spondyloarthropathy
  4. INFLIXIMAB [Suspect]
     Active Substance: INFLIXIMAB
     Indication: Iridocyclitis
     Dosage: UNKNOWN
     Route: 065
  5. GOLIMUMAB [Suspect]
     Active Substance: GOLIMUMAB
     Indication: Iridocyclitis
     Dosage: UNKNOWN
     Route: 065
  6. GOLIMUMAB [Suspect]
     Active Substance: GOLIMUMAB
     Indication: Central serous chorioretinopathy
  7. GOLIMUMAB [Suspect]
     Active Substance: GOLIMUMAB
     Indication: Spondyloarthropathy

REACTIONS (7)
  - Iridocyclitis [Unknown]
  - Spondyloarthropathy [Unknown]
  - Hypopyon [Unknown]
  - Drug specific antibody present [Unknown]
  - Paradoxical drug reaction [Unknown]
  - Loss of therapeutic response [Unknown]
  - Off label use [Unknown]
